FAERS Safety Report 4365625-0 (Version None)
Quarter: 2004Q2

REPORT INFORMATION
  Report Type: 
  Country: None (occurrence: None)
  Receive Date: 20040521
  Receipt Date: 20040429
  Transmission Date: 20050107
  Serious: Yes (Death, Life-Threatening)
  Sender: FDA-Public Use
  Company Number: DE_040413511

PATIENT
  Age: 70 Year
  Sex: Male

DRUGS (5)
  1. XIGRIS [Suspect]
     Indication: PERITONITIS
     Dates: start: 20040401, end: 20040401
  2. XIGRIS [Suspect]
     Indication: SEPSIS
     Dates: start: 20040401, end: 20040401
  3. ANTIBIOTICS [Concomitant]
  4. CATECHOLAMINES [Concomitant]
  5. INSULIN [Concomitant]

REACTIONS (3)
  - HAEMODIALYSIS [None]
  - HYPOGLYCAEMIA [None]
  - SEPTIC SHOCK [None]
